FAERS Safety Report 6349724-X (Version None)
Quarter: 2009Q3

REPORT INFORMATION
  Report Type: 
  Country: None (occurrence: None)
  Receive Date: 20090911
  Receipt Date: 20090902
  Transmission Date: 20100115
  Serious: Yes (Hospitalization)
  Sender: FDA-Public Use
  Company Number: ES-WATSON-2009-06450

PATIENT
  Age: 70 Year
  Sex: Male

DRUGS (1)
  1. ZOLPIDEM TARTRATE [Suspect]
     Indication: INSOMNIA
     Dosage: 10 MG, UNKNOWN
     Route: 048

REACTIONS (4)
  - DERMATITIS EXFOLIATIVE [None]
  - ERYTHRODERMIC PSORIASIS [None]
  - RASH [None]
  - SKIN EXFOLIATION [None]
